FAERS Safety Report 6018684-3 (Version None)
Quarter: 2008Q4

REPORT INFORMATION
  Report Type: 
  Country: None (occurrence: None)
  Receive Date: 20081223
  Receipt Date: 20081218
  Transmission Date: 20090506
  Serious: Yes (Hospitalization)
  Sender: FDA-Public Use
  Company Number: US-ABBOTT-08P-163-0493643-00

PATIENT
  Sex: Male
  Weight: 127.12 kg

DRUGS (14)
  1. HUMIRA [Suspect]
     Indication: RHEUMATOID ARTHRITIS
     Dates: start: 20060101
  2. HUMIRA [Suspect]
     Dosage: HUMIRA PEN THERAPY
  3. FOLIC ACID [Concomitant]
     Indication: DRUG USE FOR UNKNOWN INDICATION
  4. LEXAPRO [Concomitant]
     Indication: ANTIDEPRESSANT THERAPY
  5. ZOCOR [Concomitant]
     Indication: BLOOD CHOLESTEROL INCREASED
  6. REGLAN [Concomitant]
     Indication: NAUSEA
  7. PRILOSEC [Concomitant]
     Indication: DYSPEPSIA
  8. NAPROXEN [Concomitant]
     Indication: RHEUMATOID ARTHRITIS
  9. ASPIRIN [Concomitant]
     Indication: DRUG USE FOR UNKNOWN INDICATION
  10. SINGULAIR [Concomitant]
     Indication: HYPERSENSITIVITY
  11. CLARITIN [Concomitant]
     Indication: HYPERSENSITIVITY
  12. ATROVENT [Concomitant]
     Indication: HYPERSENSITIVITY
  13. ALBUTEROL [Concomitant]
     Indication: HYPERSENSITIVITY
     Dosage: NEBULIZER, FOUR IN ONE DAY
  14. HYDROCODONE BITARTRATE [Concomitant]
     Indication: RHEUMATOID ARTHRITIS
     Dosage: 5/500 MG TAB-2 TABS IN AM + 2 TABS IN PM

REACTIONS (7)
  - BLOOD PHOSPHORUS DECREASED [None]
  - CARDIAC VALVE DISEASE [None]
  - DEPRESSION [None]
  - MEDICATION ERROR [None]
  - PNEUMONIA [None]
  - RENAL FAILURE [None]
  - WEANING FAILURE [None]
